FAERS Safety Report 19489764 (Version 1)
Quarter: 2021Q3

REPORT INFORMATION
  Report Type: Spontaneous
  Country: GB (occurrence: GB)
  Receive Date: 20210704
  Receipt Date: 20210704
  Transmission Date: 20211014
  Serious: Yes (Life-Threatening)
  Sender: FDA-Public Use
  Company Number: GB-TEVA-2021-GB-1927544

PATIENT
  Age: 83 Year
  Sex: Male
  Weight: 148 kg

DRUGS (22)
  1. ALLOPURINOL. [Concomitant]
     Active Substance: ALLOPURINOL
     Indication: ILL-DEFINED DISORDER
     Dosage: 1 DOSAGE FORMS DAILY;
     Dates: start: 20210202
  2. ASPIRIN. [Concomitant]
     Active Substance: ASPIRIN
     Indication: ILL-DEFINED DISORDER
     Dosage: 1 DOSAGE FORMS DAILY; WITH FOOD TO REDUCE THE RISK OF HEART
     Dates: start: 20210202
  3. EZETIMIBE. [Concomitant]
     Active Substance: EZETIMIBE
     Indication: ILL-DEFINED DISORDER
     Dosage: 1 DOSAGE FORMS DAILY;
     Dates: start: 20210202
  4. ONEALFA [Concomitant]
     Active Substance: ALFACALCIDOL
     Indication: ILL-DEFINED DISORDER
     Dosage: 1 DOSAGE FORMS DAILY;
     Dates: start: 20210615
  5. BISOPROLOL [Concomitant]
     Active Substance: BISOPROLOL
     Indication: ILL-DEFINED DISORDER
     Dosage: 1 DOSAGE FORMS DAILY;
     Dates: start: 20210615
  6. DOXAZOSIN [Concomitant]
     Active Substance: DOXAZOSIN MESYLATE
     Indication: ILL-DEFINED DISORDER
     Dosage: 2 DOSAGE FORMS DAILY;
     Dates: start: 20210202
  7. LANTUS [Concomitant]
     Active Substance: INSULIN GLARGINE
     Indication: ILL-DEFINED DISORDER
     Dosage: AS DIRECTED
     Dates: start: 20210202
  8. DOXAZOSIN [Concomitant]
     Active Substance: DOXAZOSIN MESYLATE
     Indication: BLOOD PRESSURE MEASUREMENT
  9. ACIDEX [Concomitant]
     Indication: ILL-DEFINED DISORDER
     Dosage: 20 ML DAILY; 10 ML AFTER MEALS AND AT BEDTIME, PEPPERMINT
     Dates: start: 20210115
  10. COCODAMOL [Concomitant]
     Active Substance: ACETAMINOPHEN\CODEINE PHOSPHATE
     Indication: ILL-DEFINED DISORDER
     Dosage: 1?2  AT NIGHT IF NEEDED
     Dates: start: 20210602, end: 20210617
  11. DESUNIN [Concomitant]
     Active Substance: CHOLECALCIFEROL
     Indication: ILL-DEFINED DISORDER
     Dosage: 1 DOSAGE FORMS DAILY;
     Dates: start: 20210615
  12. BUMETANIDE. [Concomitant]
     Active Substance: BUMETANIDE
     Indication: ILL-DEFINED DISORDER
     Dosage: 1 DOSAGE FORMS DAILY; EACH MORNING
     Dates: start: 20210202, end: 20210615
  13. FELOPECT XL [Concomitant]
     Indication: ILL-DEFINED DISORDER
     Dosage: 1 DOSAGE FORMS DAILY;
     Dates: start: 20210202
  14. LANSOPRAZOLE. [Concomitant]
     Active Substance: LANSOPRAZOLE
     Indication: ILL-DEFINED DISORDER
     Dosage: 1 DOSAGE FORMS DAILY;
     Dates: start: 20210202, end: 20210615
  15. RAMIPRIL. [Suspect]
     Active Substance: RAMIPRIL
     Dates: start: 20200803
  16. ALLOPURINOL. [Concomitant]
     Active Substance: ALLOPURINOL
     Indication: GOUT
  17. COCODAMOL [Concomitant]
     Active Substance: ACETAMINOPHEN\CODEINE PHOSPHATE
     Indication: PAIN
  18. LOPERAMIDE [Concomitant]
     Active Substance: LOPERAMIDE
     Indication: ILL-DEFINED DISORDER
     Dosage: 1 AFTER EACH LOOSE STOOL. MAX 6 DAILY
     Dates: start: 20210507, end: 20210521
  19. FAMOTIDINE. [Concomitant]
     Active Substance: FAMOTIDINE
     Indication: ILL-DEFINED DISORDER
     Dosage: 1 DOSAGE FORMS DAILY;
     Dates: start: 20210615
  20. SPIRONOLACTONE. [Concomitant]
     Active Substance: SPIRONOLACTONE
     Indication: ILL-DEFINED DISORDER
     Dosage: 1 DOSAGE FORMS DAILY;
     Dates: start: 20210202, end: 20210615
  21. ATENOLOL. [Concomitant]
     Active Substance: ATENOLOL
     Indication: ILL-DEFINED DISORDER
     Dosage: 1 DOSAGE FORMS DAILY;  WITH 50MG DOSE
     Dates: start: 20210202, end: 20210615
  22. LANSOPRAZOLE. [Concomitant]
     Active Substance: LANSOPRAZOLE
     Indication: PROPHYLAXIS

REACTIONS (1)
  - Angioedema [Recovered/Resolved]

NARRATIVE: CASE EVENT DATE: 20210602
